FAERS Safety Report 4319727-5 (Version None)
Quarter: 2004Q1

REPORT INFORMATION
  Report Type: 
  Country: None (occurrence: None)
  Receive Date: 20040316
  Receipt Date: 20040304
  Transmission Date: 20041129
  Serious: Yes (Life-Threatening, Hospitalization)
  Sender: FDA-Public Use
  Company Number: US-JNJFOC-20040106134

PATIENT
  Age: 51 Year
  Sex: Male
  Weight: 107.9561 kg

DRUGS (7)
  1. REMICADE [Suspect]
     Indication: COLITIS ULCERATIVE
     Dosage: 600 MG, INTRAVENOUS; 600 MG, INTRAVENOUS
     Route: 042
     Dates: start: 20031120
  2. REMICADE [Suspect]
     Indication: COLITIS ULCERATIVE
     Dosage: 600 MG, INTRAVENOUS; 600 MG, INTRAVENOUS
     Route: 042
     Dates: start: 20031204
  3. REMICADE [Suspect]
  4. PREDNISONE [Concomitant]
  5. METHOTREXATE [Concomitant]
  6. COLAZAL (BALSALAZIDE SODIUM) [Concomitant]
  7. PERCOCET [Concomitant]

REACTIONS (9)
  - ASPIRATION [None]
  - CARDIOMEGALY [None]
  - FATIGUE [None]
  - INFECTION IN AN IMMUNOCOMPROMISED HOST [None]
  - PLEURITIC PAIN [None]
  - PNEUMONIA [None]
  - PULMONARY HAEMORRHAGE [None]
  - RESPIRATORY FAILURE [None]
  - VIRAL INFECTION [None]
